FAERS Safety Report 7828605-6 (Version None)
Quarter: 2011Q4

REPORT INFORMATION
  Report Type: 
  Country: None (occurrence: None)
  Receive Date: 20111020
  Receipt Date: 20111013
  Transmission Date: 20120403
  Serious: No
  Sender: FDA-Public Use
  Company Number: US-PFIZER INC-2011225099

PATIENT
  Sex: Female
  Weight: 54.422 kg

DRUGS (1)
  1. MEDROXYPROGESTERONE ACETATE [Suspect]
     Indication: CONTRACEPTION
     Dosage: 150 MG, ONCE IN EVERY 3 MONTH
     Route: 030
     Dates: start: 20110104

REACTIONS (1)
  - INCORRECT DOSE ADMINISTERED [None]
